FAERS Safety Report 4970658-7 (Version None)
Quarter: 2006Q2

REPORT INFORMATION
  Report Type: 
  Country: None (occurrence: None)
  Receive Date: 20060412
  Receipt Date: 20051004
  Transmission Date: 20061013
  Serious: Yes (Hospitalization, Disabling)
  Sender: FDA-Public Use
  Company Number: US-MERCK-0510USA03489

PATIENT
  Age: 58 Year
  Sex: Female
  Weight: 68 kg

DRUGS (1)
  1. VIOXX [Suspect]
     Indication: ARTHRALGIA
     Route: 048
     Dates: start: 20000101, end: 20001101

REACTIONS (6)
  - CEREBRAL DISORDER [None]
  - DIZZINESS [None]
  - EMBOLISM [None]
  - HIP ARTHROPLASTY [None]
  - LOSS OF CONSCIOUSNESS [None]
  - SLEEP APNOEA SYNDROME [None]
